FAERS Safety Report 14056970 (Version 1)
Quarter: 2017Q4

REPORT INFORMATION
  Report Type: Spontaneous
  Country: US (occurrence: US)
  Receive Date: 20171006
  Receipt Date: 20171006
  Transmission Date: 20180321
  Serious: No
  Sender: FDA-Public Use
  Company Number: US-PRINSTON PHARMACEUTICAL INC.-2017PRN00298

PATIENT
  Age: 59 Year
  Sex: Female
  Weight: 64.4 kg

DRUGS (2)
  1. VALSARTAN. [Suspect]
     Active Substance: VALSARTAN
     Indication: NEPHROPROTECTIVE THERAPY
  2. VALSARTAN. [Suspect]
     Active Substance: VALSARTAN
     Indication: INFECTION
     Dosage: 80 MG, 1X/DAY (AT 8AM)
     Route: 048
     Dates: start: 201605

REACTIONS (2)
  - Asthenia [Unknown]
  - Headache [Unknown]

NARRATIVE: CASE EVENT DATE: 201705
